FAERS Safety Report 13089714 (Version 2)
Quarter: 2017Q1

REPORT INFORMATION
  Report Type: Spontaneous
  Country: JP (occurrence: JP)
  Receive Date: 20170105
  Receipt Date: 20170118
  Transmission Date: 20170428
  Serious: Yes (Hospitalization, Other)
  Sender: FDA-Public Use
  Company Number: JP-BAYER-2017-001309

PATIENT
  Age: 67 Year
  Sex: Male

DRUGS (4)
  1. ACETYLSALICYLIC ACID (} 100 MG) [Suspect]
     Active Substance: ASPIRIN
     Indication: ANGINA PECTORIS
     Dosage: 100 MG, QD
     Route: 048
  2. CLOPIDOGREL [Concomitant]
     Active Substance: CLOPIDOGREL BISULFATE
     Dosage: 75 MG, QD
     Route: 048
  3. ROSUVASTATIN CALCIUM. [Concomitant]
     Active Substance: ROSUVASTATIN CALCIUM
     Dosage: UNK
     Route: 048
  4. ERGONOVINE MALEATE. [Concomitant]
     Active Substance: ERGONOVINE MALEATE

REACTIONS (8)
  - Coronary artery occlusion [None]
  - Prinzmetal angina [Recovered/Resolved]
  - Arteriospasm coronary [None]
  - Acute myocardial infarction [None]
  - Ventricular fibrillation [None]
  - CYP2C19 polymorphism [None]
  - Vascular stent thrombosis [Recovered/Resolved]
  - Drug ineffective [None]
